FAERS Safety Report 12726388 (Version 1)
Quarter: 2016Q3

REPORT INFORMATION
  Report Type: Spontaneous
  Country: US (occurrence: US)
  Receive Date: 20160908
  Receipt Date: 20160908
  Transmission Date: 20161109
  Serious: No
  Sender: FDA-Public Use
  Company Number: None

PATIENT
  Age: 39 Year
  Sex: Female

DRUGS (1)
  1. GLATOPA [Suspect]
     Active Substance: GLATIRAMER ACETATE
     Route: 058
     Dates: start: 20160906, end: 20160906

REACTIONS (3)
  - Hypersensitivity [None]
  - Product substitution issue [None]
  - Injection site infection [None]

NARRATIVE: CASE EVENT DATE: 20160906
